FAERS Safety Report 23276819 (Version 2)
Quarter: 2023Q4

REPORT INFORMATION
  Report Type: Spontaneous
  Country: CN (occurrence: CN)
  Receive Date: 20231208
  Receipt Date: 20231218
  Transmission Date: 20240110
  Serious: Yes (Other)
  Sender: FDA-Public Use
  Company Number: CN-002147023-NVSC2023CN257491

PATIENT
  Age: 51 Year
  Sex: Male

DRUGS (1)
  1. ENTRESTO [Suspect]
     Active Substance: SACUBITRIL\VALSARTAN
     Indication: Angina unstable
     Dosage: 1 DOSAGE FORM, QD (200 MG) (100MG IN THE EVENING ON 31-OCT AND 100 MG IN THE MORNING ON 01-NOV)
     Route: 048
     Dates: start: 20231031, end: 20231101

REACTIONS (4)
  - Hypotension [Recovering/Resolving]
  - Hyperhidrosis [Unknown]
  - Dizziness [Unknown]
  - Product use in unapproved indication [Unknown]

NARRATIVE: CASE EVENT DATE: 20231101
